FAERS Safety Report 13188890 (Version 1)
Quarter: 2017Q1

REPORT INFORMATION
  Report Type: Spontaneous
  Country: US (occurrence: US)
  Receive Date: 20170203
  Receipt Date: 20170203
  Transmission Date: 20170428
  Serious: Yes (Death, Hospitalization)
  Sender: FDA-Public Use
  Company Number: None

PATIENT
  Age: 15 Year
  Sex: Female
  Weight: 59.4 kg

DRUGS (6)
  1. MINOCYCLINE [Concomitant]
     Active Substance: MINOCYCLINE\MINOCYCLINE HYDROCHLORIDE
  2. SULFAMETHOXAZOLE-TMP [Suspect]
     Active Substance: SULFAMETHOXAZOLE\TRIMETHOPRIM
     Indication: ACNE
     Dosage: ?          QUANTITY:1 TABLET(S);?
     Route: 048
     Dates: start: 20150902, end: 20150919
  3. PROZAC [Concomitant]
     Active Substance: FLUOXETINE HYDROCHLORIDE
  4. BYAZ [Concomitant]
  5. BACTRIM [Concomitant]
     Active Substance: SULFAMETHOXAZOLE\TRIMETHOPRIM
  6. FLINSTONE VITAMINS [Concomitant]

REACTIONS (9)
  - Hepatic enzyme increased [None]
  - Rash maculo-papular [None]
  - Cardiac failure [None]
  - Drug reaction with eosinophilia and systemic symptoms [None]
  - Acute hepatic failure [None]
  - Pyrexia [None]
  - Eosinophilic myocarditis [None]
  - Nonspecific reaction [None]
  - Sudden death [None]

NARRATIVE: CASE EVENT DATE: 20150923
